FAERS Safety Report 7079125-0 (Version None)
Quarter: 2010Q4

REPORT INFORMATION
  Report Type: 
  Country: None (occurrence: None)
  Receive Date: 20101102
  Receipt Date: 20101026
  Transmission Date: 20110411
  Serious: Yes (Death)
  Sender: FDA-Public Use
  Company Number: A0872344A

PATIENT
  Age: 69 Year
  Sex: Female

DRUGS (5)
  1. TYKERB [Suspect]
     Indication: BREAST CANCER
     Dosage: 1500MG TWICE PER DAY
     Route: 048
     Dates: start: 20100106
  2. XELODA [Concomitant]
  3. AREDIA [Concomitant]
  4. UNKNOWN [Concomitant]
  5. CONCURRENT MEDICATIONS [Concomitant]

REACTIONS (1)
  - DEATH [None]
